FAERS Safety Report 5032498-2 (Version None)
Quarter: 2006Q2

REPORT INFORMATION
  Report Type: 
  Country: None (occurrence: None)
  Receive Date: 20060622
  Receipt Date: 20060614
  Transmission Date: 20061013
  Serious: Yes (Disabling)
  Sender: FDA-Public Use
  Company Number: FR-AMGEN-UK182875

PATIENT
  Age: 84 Year
  Sex: Male

DRUGS (1)
  1. ARANESP [Suspect]
     Indication: RENAL FAILURE CHRONIC
     Route: 065

REACTIONS (3)
  - HYPERSENSITIVITY [None]
  - RASH [None]
  - SCIATICA [None]
